FAERS Safety Report 23387835 (Version 2)
Quarter: 2024Q1

REPORT INFORMATION
  Report Type: Spontaneous
  Country: US (occurrence: None)
  Receive Date: 20240110
  Receipt Date: 20240111
  Transmission Date: 20240409
  Serious: Yes (Death)
  Sender: FDA-Public Use
  Company Number: US-ROCHE-3487463

PATIENT
  Age: 81 Year
  Sex: Male
  Weight: 52 kg

DRUGS (12)
  1. ESBRIET [Suspect]
     Active Substance: PIRFENIDONE
     Indication: Product used for unknown indication
     Route: 065
  2. TYVASO DPI [Suspect]
     Active Substance: TREPROSTINIL
     Indication: Pulmonary arterial hypertension
     Route: 055
     Dates: start: 20230705
  3. TYVASO DPI [Suspect]
     Active Substance: TREPROSTINIL
     Route: 055
     Dates: start: 2023
  4. OMEPRAZOLE [Concomitant]
     Active Substance: OMEPRAZOLE
  5. ATORVASTATIN CALCIUM [Concomitant]
     Active Substance: ATORVASTATIN CALCIUM
  6. TYLENOL [Concomitant]
     Active Substance: ACETAMINOPHEN
  7. PREDNISONE [Concomitant]
     Active Substance: PREDNISONE
  8. ESCITALOPRAM OXALATE [Concomitant]
     Active Substance: ESCITALOPRAM OXALATE
  9. IMODIUM [Concomitant]
     Active Substance: LOPERAMIDE HYDROCHLORIDE
  10. OXYGEN [Concomitant]
     Active Substance: OXYGEN
  11. ASPIRIN [Concomitant]
     Active Substance: ASPIRIN
  12. SILDENAFIL CITRATE [Concomitant]
     Active Substance: SILDENAFIL CITRATE

REACTIONS (1)
  - Death [Fatal]

NARRATIVE: CASE EVENT DATE: 20231229
